FAERS Safety Report 9771805 (Version 2)
Quarter: 2014Q1

REPORT INFORMATION
  Report Type: Spontaneous
  Country: RS (occurrence: RS)
  Receive Date: 20131219
  Receipt Date: 20140117
  Transmission Date: 20141002
  Serious: Yes (Hospitalization)
  Sender: FDA-Public Use
  Company Number: RS-ASTRAZENECA-2013SE90735

PATIENT
  Age: 62 Year
  Sex: Female
  Weight: 74 kg

DRUGS (4)
  1. BRILIQUE [Suspect]
     Route: 048
     Dates: start: 20131125, end: 20131204
  2. ASA [Concomitant]
  3. CLOPIDOGREL [Concomitant]
  4. SIMVASTATIN [Concomitant]
     Route: 048

REACTIONS (5)
  - Angina pectoris [Recovering/Resolving]
  - Electrocardiogram ST segment depression [Recovering/Resolving]
  - Electrocardiogram T wave inversion [Recovering/Resolving]
  - Coronary artery thrombosis [Recovered/Resolved]
  - Drug ineffective [Recovered/Resolved]
